FAERS Safety Report 9760273 (Version 1)
Quarter: 2013Q4

REPORT INFORMATION
  Report Type: Spontaneous
  Country: US (occurrence: US)
  Receive Date: 20131216
  Receipt Date: 20131216
  Transmission Date: 20140711
  Serious: No
  Sender: FDA-Public Use
  Company Number: US-GILEAD-2010-0028921

PATIENT
  Sex: Female
  Weight: 60.33 kg

DRUGS (19)
  1. LETAIRIS [Suspect]
     Indication: PULMONARY ARTERIAL HYPERTENSION
     Route: 048
     Dates: start: 20090408
  2. LASIX [Concomitant]
  3. KLOR-CON [Concomitant]
  4. FERROUS SULFATE [Concomitant]
  5. ADVANCED CALCIUM [Concomitant]
  6. PANTOPRAZOLE SODIUM [Concomitant]
  7. NAPROXEN [Concomitant]
  8. FOSAMAX [Concomitant]
  9. ALDACTONE [Concomitant]
  10. MULTIVITAMIN [Concomitant]
  11. LUMIGAN [Concomitant]
  12. CELEBREX [Concomitant]
  13. ZESTRIL [Concomitant]
  14. GLIPIZIDE [Concomitant]
  15. COUMADIN [Concomitant]
  16. GLUCOPHAGE [Concomitant]
  17. LOVASTATIN [Concomitant]
  18. TENORMIN [Concomitant]
  19. HYDROCHLOROTHIAZIDE [Concomitant]

REACTIONS (1)
  - Anaemia [Unknown]
